FAERS Safety Report 14779873 (Version 1)
Quarter: 2018Q2

REPORT INFORMATION
  Report Type: Report from Study
  Country: US (occurrence: US)
  Receive Date: 20180419
  Receipt Date: 20180419
  Transmission Date: 20180711
  Serious: Yes (Other)
  Sender: FDA-Public Use
  Company Number: US-TEVA-2018-US-882673

PATIENT
  Age: 57 Year
  Sex: Male

DRUGS (3)
  1. ENOXAPARIN [Suspect]
     Active Substance: ENOXAPARIN
     Indication: ANTICOAGULANT THERAPY
     Dosage: AT BEDTIME
     Route: 065
  2. ONABOTULINUMTOXIN A [Concomitant]
     Active Substance: ONABOTULINUMTOXINA
     Indication: PERIPHERAL NERVE DESTRUCTION
     Route: 030
  3. SALINE [Concomitant]
     Active Substance: SODIUM CHLORIDE
     Route: 065

REACTIONS (1)
  - Muscle haemorrhage [Recovered/Resolved]
